FAERS Safety Report 12291451 (Version 2)
Quarter: 2016Q2

REPORT INFORMATION
  Report Type: Report from Study
  Country: NL (occurrence: NL)
  Receive Date: 20160421
  Receipt Date: 20160512
  Transmission Date: 20160815
  Serious: Yes (Hospitalization)
  Sender: FDA-Public Use
  Company Number: NL-ABBVIE-16P-114-1607772-00

PATIENT
  Age: 62 Year
  Sex: Male
  Weight: 65 kg

DRUGS (13)
  1. DEXAMETASON [Concomitant]
     Active Substance: DEXAMETHASONE
     Dosage: DAY OF CHEMOTHERAPY
     Route: 048
     Dates: start: 201602
  2. DEXAMETASON [Concomitant]
     Active Substance: DEXAMETHASONE
     Dosage: AFTER CHEMOTHERAPY
     Route: 048
     Dates: start: 201602
  3. PREDNISON [Concomitant]
     Active Substance: PREDNISONE
     Indication: CHEMOTHERAPY
     Route: 048
     Dates: start: 201602
  4. OXIS [Concomitant]
     Active Substance: FORMOTEROL FUMARATE
     Indication: CHRONIC OBSTRUCTIVE PULMONARY DISEASE
     Dosage: 5 MCG
     Route: 055
  5. SPIRIVA [Concomitant]
     Active Substance: TIOTROPIUM BROMIDE MONOHYDRATE
     Indication: CHRONIC OBSTRUCTIVE PULMONARY DISEASE
     Dosage: 18 MCG
     Route: 055
  6. MOVICOLON [Concomitant]
     Active Substance: POLYETHYLENE GLYCOL 3350\POTASSIUM CHLORIDE\SODIUM BICARBONATE\SODIUM CHLORIDE
     Indication: ABNORMAL FAECES
     Route: 048
  7. LUCRIN DEPOT [Suspect]
     Active Substance: LEUPROLIDE ACETATE
     Indication: PROSTATE CANCER
     Route: 030
     Dates: start: 20130501
  8. PANTOZOL [Concomitant]
     Active Substance: PANTOPRAZOLE SODIUM
     Indication: GASTRIC DISORDER
     Route: 065
     Dates: start: 201603
  9. PANTOZOL [Concomitant]
     Active Substance: PANTOPRAZOLE SODIUM
     Indication: PROPHYLAXIS
  10. SIMVASTATIN. [Concomitant]
     Active Substance: SIMVASTATIN
     Indication: HYPERCHOLESTEROLAEMIA
     Route: 065
     Dates: start: 201603
  11. ASCAL [Concomitant]
     Active Substance: CARBASALATE
     Indication: ANTICOAGULANT THERAPY
     Route: 048
     Dates: start: 20130326, end: 20160405
  12. DEXAMETASON [Concomitant]
     Active Substance: DEXAMETHASONE
     Indication: CHEMOTHERAPY
     Dosage: NIGHT PRIOR TO CHEMOTHERAPY
     Route: 048
     Dates: start: 201602
  13. EXEVATE [Concomitant]
     Indication: BONE DISORDER
     Route: 050
     Dates: start: 2014

REACTIONS (2)
  - Transient ischaemic attack [Recovering/Resolving]
  - Aphasia [Recovering/Resolving]

NARRATIVE: CASE EVENT DATE: 201603
